FAERS Safety Report 4621810-1 (Version None)
Quarter: 2005Q1

REPORT INFORMATION
  Report Type: 
  Country: None (occurrence: None)
  Receive Date: 20050329
  Receipt Date: 20050318
  Transmission Date: 20050727
  Serious: Yes (Death)
  Sender: FDA-Public Use
  Company Number: ZA-ROCHE-399064

PATIENT
  Age: 59 Year
  Sex: Male
  Weight: 87 kg

DRUGS (1)
  1. XELODA [Suspect]
     Route: 048
     Dates: start: 20050202, end: 20050208

REACTIONS (1)
  - MYOCARDIAL INFARCTION [None]
